FAERS Safety Report 11582781 (Version 1)
Quarter: 2015Q4

REPORT INFORMATION
  Report Type: Spontaneous
  Country: US (occurrence: US)
  Receive Date: 20151001
  Receipt Date: 20151001
  Transmission Date: 20160304
  Serious: No
  Sender: FDA-Public Use
  Company Number: US-ROCHE-673113

PATIENT
  Age: 55 Year
  Sex: Male
  Weight: 72.6 kg

DRUGS (1)
  1. PEGASYS [Suspect]
     Active Substance: PEGINTERFERON ALFA-2A
     Indication: HEPATITIS C
     Route: 058

REACTIONS (3)
  - Blood creatinine abnormal [Unknown]
  - Dehydration [Unknown]
  - Blood urea abnormal [Unknown]

NARRATIVE: CASE EVENT DATE: 200911
